FAERS Safety Report 18391873 (Version 1)
Quarter: 2020Q4

REPORT INFORMATION
  Report Type: Spontaneous
  Country: PR (occurrence: PR)
  Receive Date: 20201016
  Receipt Date: 20201016
  Transmission Date: 20210114
  Serious: No
  Sender: FDA-Public Use
  Company Number: PR-LUNDBECK-DKLU3022561

PATIENT
  Age: 62 Year
  Sex: Female

DRUGS (1)
  1. NORTHERA [Suspect]
     Active Substance: DROXIDOPA
     Indication: ORTHOSTATIC HYPOTENSION
     Dosage: OVERDOSE: 6 (300 MG) CAPSULES DAILY
     Route: 048
     Dates: start: 2017

REACTIONS (1)
  - Prescribed overdose [Unknown]
